FAERS Safety Report 14682030 (Version 2)
Quarter: 2018Q2

REPORT INFORMATION
  Report Type: Report from Study
  Country: FR (occurrence: FR)
  Receive Date: 20180326
  Receipt Date: 20180420
  Transmission Date: 20180711
  Serious: Yes (Other)
  Sender: FDA-Public Use
  Company Number: FR-GILEAD-2018-0323432

PATIENT
  Age: 45 Year
  Sex: Male

DRUGS (5)
  1. TENOFOVIR DISOPROXIL FUMARATE. [Suspect]
     Active Substance: TENOFOVIR DISOPROXIL FUMARATE
     Indication: HIV INFECTION
     Dosage: UNK
     Route: 065
  2. DIDANOSINE. [Concomitant]
     Active Substance: DIDANOSINE
     Route: 065
  3. DIDANOSINE. [Concomitant]
     Active Substance: DIDANOSINE
     Indication: ANTIRETROVIRAL THERAPY
     Route: 065
  4. TENOFOVIR DISOPROXIL FUMARATE. [Suspect]
     Active Substance: TENOFOVIR DISOPROXIL FUMARATE
     Indication: ANTIRETROVIRAL THERAPY
  5. LOPINAVIR/RITONAVIR [Concomitant]
     Active Substance: LOPINAVIR\RITONAVIR
     Indication: ANTIRETROVIRAL THERAPY
     Route: 065

REACTIONS (4)
  - Nephropathy toxic [Unknown]
  - Renal tubular dysfunction [Unknown]
  - Acute kidney injury [Unknown]
  - Drug interaction [Unknown]
